FAERS Safety Report 25201485 (Version 1)
Quarter: 2025Q2

REPORT INFORMATION
  Report Type: Spontaneous
  Country: US (occurrence: US)
  Receive Date: 20250416
  Receipt Date: 20250416
  Transmission Date: 20250716
  Serious: No
  Sender: ENDO
  Company Number: US-ENDO USA, INC.-2024-050835

PATIENT
  Sex: Male

DRUGS (1)
  1. AVEED [Suspect]
     Active Substance: TESTOSTERONE UNDECANOATE
     Indication: Product used for unknown indication
     Route: 051

REACTIONS (1)
  - Treatment delayed [Not Recovered/Not Resolved]

NARRATIVE: CASE EVENT DATE: 20240101
